FAERS Safety Report 6559084-7 (Version None)
Quarter: 2010Q1

REPORT INFORMATION
  Report Type: 
  Country: None (occurrence: None)
  Receive Date: 20100129
  Receipt Date: 20100118
  Transmission Date: 20100710
  Serious: Yes (Other)
  Sender: FDA-Public Use
  Company Number: US-ELI_LILLY_AND_COMPANY-US201001003960

PATIENT
  Sex: Male

DRUGS (24)
  1. FORTEO [Suspect]
     Indication: OSTEOPOROSIS
     Dosage: 20 UG, DAILY (1/D)
     Dates: start: 20080701
  2. FEMARA [Concomitant]
     Dosage: 25 MG, DAILY (1/D)
  3. COZAAR [Concomitant]
     Dosage: 100 MG, UNK
  4. ATENOLOL [Concomitant]
     Dosage: 25 MG, 2/D
  5. FELODIPINE [Concomitant]
     Dosage: 5 MG, DAILY (1/D)
  6. PLAVIX [Concomitant]
     Dosage: 75 MG, DAILY (1/D)
  7. OMEPRAZOLE [Concomitant]
     Dosage: 20 MG, DAILY (1/D)
  8. FLOMAX [Concomitant]
     Dosage: 0.4 MG, DAILY (1/D)
  9. SINGULAIR [Concomitant]
     Dosage: 10 MG, DAILY (1/D)
  10. AMIODARONE [Concomitant]
     Dosage: 100 MG, DAILY (1/D)
  11. FUROSEMIDE [Concomitant]
     Dosage: 20 MG, UNK
  12. FUROSEMIDE [Concomitant]
     Dosage: 40 MG, UNK
  13. TRIMOX [Concomitant]
  14. LIPITOR [Concomitant]
     Dosage: 10 MG, DAILY (1/D)
  15. FOLIC ACID [Concomitant]
     Dosage: 1 MG, DAILY (1/D)
  16. ASPIRIN [Concomitant]
     Dosage: 81 MG, DAILY (1/D)
  17. MAGNESIUM [Concomitant]
     Dosage: 400 MG, DAILY (1/D)
  18. CITRICAL [Concomitant]
  19. MULTI-VITAMIN [Concomitant]
  20. FERROUS SULFATE TAB [Concomitant]
     Dosage: 325 MG, 3/D
  21. LOVAZA [Concomitant]
  22. VITAMIN C [Concomitant]
     Dosage: 500 MG, DAILY (1/D)
  23. VITAMIN D [Concomitant]
     Dosage: 400 IU, DAILY (1/D)
  24. TYLENOL (CAPLET) [Concomitant]

REACTIONS (4)
  - BREAST CANCER [None]
  - MUSCULOSKELETAL STIFFNESS [None]
  - PAIN IN EXTREMITY [None]
  - RETRACTED NIPPLE [None]
